FAERS Safety Report 5400310-5 (Version None)
Quarter: 2007Q3

REPORT INFORMATION
  Report Type: 
  Country: None (occurrence: None)
  Receive Date: 20070730
  Receipt Date: 20070720
  Transmission Date: 20080115
  Serious: Yes (Other)
  Sender: FDA-Public Use
  Company Number: US-ROCHE-508207

PATIENT
  Sex: Male

DRUGS (1)
  1. PEGASYS [Suspect]
     Indication: DRUG USE FOR UNKNOWN INDICATION
     Dosage: REPORTED AS MAINTENANCE THERAPY
     Route: 065
     Dates: start: 20040701

REACTIONS (3)
  - ANAL CANCER [None]
  - HYPOAESTHESIA [None]
  - INJECTION SITE SWELLING [None]
